FAERS Safety Report 4978615-1 (Version None)
Quarter: 2006Q2

REPORT INFORMATION
  Report Type: 
  Country: None (occurrence: None)
  Receive Date: 20060420
  Receipt Date: 20060410
  Transmission Date: 20061013
  Serious: Yes (Hospitalization)
  Sender: FDA-Public Use
  Company Number: SE-MERCK-0604SWE00015

PATIENT
  Age: 12 Year
  Sex: Male

DRUGS (4)
  1. VIOXX [Suspect]
     Indication: JUVENILE ARTHRITIS
     Route: 048
     Dates: start: 20030101, end: 20030201
  2. NAPROXEN [Concomitant]
     Indication: JUVENILE ARTHRITIS
     Route: 048
     Dates: start: 20011101, end: 20050101
  3. NAPROXEN [Concomitant]
     Route: 048
     Dates: start: 20011101, end: 20050101
  4. CELECOXIB [Concomitant]
     Indication: JUVENILE ARTHRITIS
     Route: 048
     Dates: start: 20020401, end: 20020501

REACTIONS (5)
  - COLITIS [None]
  - DUODENAL ULCER [None]
  - GASTROINTESTINAL INFLAMMATION [None]
  - ILEAL STENOSIS [None]
  - VASCULITIS [None]
